FAERS Safety Report 4859827-4 (Version None)
Quarter: 2005Q4

REPORT INFORMATION
  Report Type: 
  Country: None (occurrence: None)
  Receive Date: 20051215
  Receipt Date: 20051129
  Transmission Date: 20060501
  Serious: Yes (Other)
  Sender: FDA-Public Use
  Company Number: WAES 0510USA04628

PATIENT
  Age: 60 Year
  Sex: Female
  Weight: 58.0604 kg

DRUGS (5)
  1. VIOXX [Suspect]
     Indication: RHEUMATOID ARTHRITIS
     Dosage: 25 MG/DAILY/PO
     Route: 048
     Dates: start: 19980615, end: 19980714
  2. VIOXX [Suspect]
     Indication: RHEUMATOID ARTHRITIS
     Dosage: 25 MG/DAILY/PO
     Route: 048
     Dates: start: 19980715, end: 20000815
  3. ACETAMINOPHEN [Suspect]
     Indication: RHEUMATOID ARTHRITIS
     Dosage: 325 MG/PRN/PO
     Route: 048
     Dates: start: 19980615, end: 20000815
  4. [THERAPY UNSPECIFIED] [Concomitant]
  5. METHOTREXATE [Concomitant]

REACTIONS (7)
  - CARDIOVASCULAR DISORDER [None]
  - CATARACT [None]
  - GLAUCOMA [None]
  - LYMPHADENECTOMY [None]
  - MALIGNANT MELANOMA [None]
  - RETINAL ARTERY OCCLUSION [None]
  - VISUAL DISTURBANCE [None]
